FAERS Safety Report 5835408-0 (Version None)
Quarter: 2008Q3

REPORT INFORMATION
  Report Type: 
  Country: None (occurrence: None)
  Receive Date: 20080806
  Receipt Date: 20080730
  Transmission Date: 20090109
  Serious: Yes (Other)
  Sender: FDA-Public Use
  Company Number: FR-AVENTIS-200719058GDDC

PATIENT
  Age: 57 Year
  Sex: Female

DRUGS (7)
  1. DOCETAXEL [Suspect]
     Dosage: DOSE: UNK
     Route: 042
     Dates: start: 20060803, end: 20060803
  2. BEVACIZUMAB [Suspect]
     Route: 042
     Dates: start: 20061005, end: 20061005
  3. LOVENOX [Concomitant]
     Dates: start: 20060404
  4. LYTOS [Concomitant]
     Dosage: DOSE: UNK
  5. LEXOMIL [Concomitant]
     Dosage: DOSE: UNK
  6. TOPALGIC [Concomitant]
     Dosage: DOSE: UNK
     Dates: start: 20060424, end: 20060426
  7. COUMADIN [Concomitant]
     Dosage: DOSE: UNK

REACTIONS (1)
  - NASAL SEPTUM ULCERATION [None]
